FAERS Safety Report 9619951 (Version 1)
Quarter: 2013Q4

REPORT INFORMATION
  Report Type: Spontaneous
  Country: US (occurrence: US)
  Receive Date: 20131014
  Receipt Date: 20131014
  Transmission Date: 20140711
  Serious: No
  Sender: FDA-Public Use
  Company Number: US-PFIZER INC-2013292748

PATIENT
  Sex: Female

DRUGS (2)
  1. XANAX [Suspect]
     Dosage: UNK
  2. LEXAPRO [Suspect]
     Dosage: UNK

REACTIONS (3)
  - Diarrhoea [Unknown]
  - Crying [Unknown]
  - Insomnia [Unknown]
